FAERS Safety Report 4616590-X (Version None)
Quarter: 2005Q1

REPORT INFORMATION
  Report Type: 
  Country: None (occurrence: None)
  Receive Date: 20050318
  Receipt Date: 20050314
  Transmission Date: 20050727
  Serious: Yes (Life-Threatening, Hospitalization)
  Sender: FDA-Public Use
  Company Number: 163-20785-04120292

PATIENT
  Age: 59 Year
  Sex: Female

DRUGS (8)
  1. THALOMID [Suspect]
     Indication: MULTIPLE MYELOMA
     Dosage: 100 MG, DAILY, ORAL
     Route: 048
     Dates: start: 20040815
  2. ATIVAN [Concomitant]
  3. LASIX [Concomitant]
  4. KCL (POTASSIUM CHLORIDE) [Concomitant]
  5. LORTAB [Concomitant]
  6. LEXAPRO [Concomitant]
  7. COMBIVENT [Concomitant]
  8. ADVAIR DISKUS 100/50 [Concomitant]

REACTIONS (1)
  - RESPIRATORY FAILURE [None]
